FAERS Safety Report 5842823-8 (Version None)
Quarter: 2008Q3

REPORT INFORMATION
  Report Type: 
  Country: None (occurrence: None)
  Receive Date: 20080811
  Receipt Date: 20080801
  Transmission Date: 20090109
  Serious: Yes (Other)
  Sender: FDA-Public Use
  Company Number: 2007SP006464

PATIENT
  Age: 53 Year
  Sex: Male

DRUGS (5)
  1. PEG-INTRON [Suspect]
     Indication: HEPATITIS C
     Dates: start: 20030101, end: 20040201
  2. RIBAVIRIN [Suspect]
     Indication: DRUG USE FOR UNKNOWN INDICATION
     Dosage: QD; PO
     Route: 048
     Dates: start: 20030101, end: 20040201
  3. ZYRTEC [Concomitant]
  4. COUMADIN [Concomitant]
  5. ATENOL [Concomitant]

REACTIONS (10)
  - AUTOIMMUNE HEPATITIS [None]
  - BLOOD PRESSURE INCREASED [None]
  - DISCOMFORT [None]
  - GALLBLADDER PAIN [None]
  - GENERAL PHYSICAL HEALTH DETERIORATION [None]
  - HYPERHIDROSIS [None]
  - MYALGIA [None]
  - PANCREATIC DISORDER [None]
  - TYPE 2 DIABETES MELLITUS [None]
  - UNEVALUABLE EVENT [None]
